FAERS Safety Report 5429088-6 (Version None)
Quarter: 2007Q3

REPORT INFORMATION
  Report Type: 
  Country: None (occurrence: None)
  Receive Date: 20070824
  Receipt Date: 20070810
  Transmission Date: 20080115
  Serious: Yes (Death)
  Sender: FDA-Public Use
  Company Number: 159975ISR

PATIENT
  Age: 51 Year
  Sex: Male

DRUGS (2)
  1. CLOMIPRAMINE HCL [Suspect]
     Dosage: 125 MG, ORAL
     Route: 048
     Dates: start: 20061201
  2. CLOZAPINE [Suspect]
     Indication: SCHIZOAFFECTIVE DISORDER
     Dosage: ORAL
     Route: 048
     Dates: start: 20000101

REACTIONS (2)
  - CONSTIPATION [None]
  - RESPIRATORY FAILURE [None]
